FAERS Safety Report 9563262 (Version 1)
Quarter: 2013Q3

REPORT INFORMATION
  Report Type: Spontaneous
  Country: FR (occurrence: FR)
  Receive Date: 20130927
  Receipt Date: 20130927
  Transmission Date: 20140515
  Serious: Yes (Hospitalization)
  Sender: FDA-Public Use
  Company Number: PHHY2013FR107508

PATIENT
  Age: 43 Year
  Sex: Male

DRUGS (2)
  1. ACLASTA [Suspect]
     Indication: OSTEOPOROTIC FRACTURE
     Dosage: ONCE YEARLY
     Route: 042
     Dates: start: 200912
  2. FOSAMAX [Suspect]
     Indication: OSTEOPOROTIC FRACTURE
     Dosage: 1 DF, QD
     Dates: start: 200912

REACTIONS (1)
  - Osteonecrosis [Recovered/Resolved]
